FAERS Safety Report 21840212 (Version 1)
Quarter: 2023Q1

REPORT INFORMATION
  Report Type: Report from Study
  Country: US (occurrence: US)
  Receive Date: 20230110
  Receipt Date: 20230110
  Transmission Date: 20230418
  Serious: No
  Sender: FDA-Public Use
  Company Number: US-ABBVIE-4233992

PATIENT
  Sex: Female

DRUGS (1)
  1. HUMIRA [Suspect]
     Active Substance: ADALIMUMAB
     Indication: Psoriatic arthropathy
     Dosage: EVENT ONSET FOR REDNESS DEC 2022 AND OTHER EVENT 2022?LAST ADMIN DATE 2022
     Route: 058
     Dates: start: 20221207

REACTIONS (3)
  - Ear discomfort [Unknown]
  - Erythema [Recovering/Resolving]
  - Skin burning sensation [Unknown]
